FAERS Safety Report 16080280 (Version 1)
Quarter: 2019Q1

REPORT INFORMATION
  Report Type: Spontaneous
  Country: US (occurrence: US)
  Receive Date: 20190315
  Receipt Date: 20190315
  Transmission Date: 20190418
  Serious: No
  Sender: FDA-Public Use
  Company Number: US-PTC THERAPEUTICS, INC.-US-2018PTC001279

PATIENT

DRUGS (1)
  1. EMFLAZA [Suspect]
     Active Substance: DEFLAZACORT
     Indication: MUSCULAR DYSTROPHY
     Dosage: 1.3 ML, QD
     Route: 048
     Dates: start: 20171011

REACTIONS (4)
  - Product dose omission [Unknown]
  - Vomiting [Unknown]
  - Productive cough [Unknown]
  - Nasopharyngitis [Unknown]
